FAERS Safety Report 5594616-7 (Version None)
Quarter: 2008Q1

REPORT INFORMATION
  Report Type: 
  Country: None (occurrence: None)
  Receive Date: 20080117
  Receipt Date: 20070823
  Transmission Date: 20080703
  Serious: No
  Sender: FDA-Public Use
  Company Number: US-ABBOTT-07P-163-0415317-00

PATIENT
  Sex: Female
  Weight: 86.26 kg

DRUGS (6)
  1. TRICOR [Suspect]
     Indication: BLOOD TRIGLYCERIDES INCREASED
     Route: 048
     Dates: start: 20070607, end: 20070705
  2. LOTREL [Concomitant]
     Indication: HYPERTENSION
     Route: 048
     Dates: start: 20050101
  3. PAROXETINE HYDROCHLORIDE [Concomitant]
     Indication: PANIC ATTACK
     Route: 048
     Dates: start: 20000101
  4. OMEPRAZOLE [Concomitant]
     Indication: DYSPEPSIA
     Route: 048
     Dates: start: 20060101
  5. CALCIUM CARBONATE [Concomitant]
     Indication: DYSPEPSIA
     Route: 048
  6. ATORVASTATIN CALCIUM [Concomitant]
     Indication: BLOOD TRIGLYCERIDES INCREASED
     Route: 048
     Dates: start: 20020101

REACTIONS (2)
  - ABDOMINAL DISCOMFORT [None]
  - CALCULUS URINARY [None]
